FAERS Safety Report 8983281 (Version 3)
Quarter: 2013Q2

REPORT INFORMATION
  Report Type: Spontaneous
  Country: CH (occurrence: CH)
  Receive Date: 20121221
  Receipt Date: 20130424
  Transmission Date: 20140414
  Serious: Yes (Hospitalization, Other)
  Sender: FDA-Public Use
  Company Number: CH-ABBOTT-12P-151-1024539-00

PATIENT
  Age: 34 Year
  Sex: Male
  Weight: 62.9 kg

DRUGS (14)
  1. NORVIR [Suspect]
     Indication: HIV INFECTION
     Route: 048
     Dates: start: 20121002
  2. SEROQUEL XR [Interacting]
     Indication: MOOD DISORDER DUE TO A GENERAL MEDICAL CONDITION
     Route: 048
     Dates: start: 20120925, end: 20121014
  3. SEROQUEL XR [Interacting]
     Dosage: TAPERING OFF
     Dates: start: 20121010, end: 20121014
  4. PYRIMETHAMINE [Interacting]
     Indication: CEREBRAL TOXOPLASMOSIS
     Route: 048
     Dates: start: 20120920
  5. SULFADIAZINE [Interacting]
     Indication: CEREBRAL TOXOPLASMOSIS
     Route: 048
     Dates: start: 201209, end: 20121005
  6. KEPPRA [Concomitant]
     Indication: PRODUCT USED FOR UNKNOWN INDICATION
     Route: 048
     Dates: start: 20120915, end: 20121026
  7. LEUCOVORIN [Concomitant]
     Indication: BONE MARROW FAILURE
     Dates: start: 20120920
  8. LEUCOVORIN [Concomitant]
     Indication: PROPHYLAXIS
  9. PREZISTA [Concomitant]
     Indication: PRODUCT USED FOR UNKNOWN INDICATION
     Route: 048
     Dates: start: 20121002
  10. KIVEXA [Concomitant]
     Indication: HIV INFECTION
     Route: 048
     Dates: start: 20121005
  11. COMBIVIR [Concomitant]
     Indication: HIV INFECTION
     Route: 048
     Dates: start: 20121002, end: 20121005
  12. CLINDAMYCIN [Concomitant]
     Indication: PRODUCT USED FOR UNKNOWN INDICATION
     Dates: start: 20121005, end: 20121026
  13. TRUXAL [Concomitant]
     Indication: AFFECTIVE DISORDER
     Dates: start: 20121010
  14. TRUXAL [Concomitant]
     Indication: AFFECTIVE DISORDER

REACTIONS (14)
  - Pancytopenia [Recovering/Resolving]
  - Liver injury [Recovering/Resolving]
  - Drug level increased [Unknown]
  - Cytomegalovirus syndrome [Unknown]
  - Pyrexia [Unknown]
  - Abdominal pain upper [Unknown]
  - Vomiting [Unknown]
  - Diarrhoea [Unknown]
  - Oral candidiasis [Unknown]
  - Lymphadenopathy [Unknown]
  - Liver function test abnormal [Recovering/Resolving]
  - Toxicity to various agents [Unknown]
  - Hypersensitivity [Unknown]
  - Drug interaction [Unknown]
